FAERS Safety Report 13584470 (Version 2)
Quarter: 2017Q2

REPORT INFORMATION
  Report Type: Report from Study
  Country: IT (occurrence: IT)
  Receive Date: 20170526
  Receipt Date: 20170606
  Transmission Date: 20170830
  Serious: Yes (Hospitalization)
  Sender: FDA-Public Use
  Company Number: IT-ACCORD-051758

PATIENT
  Age: 51 Year
  Sex: Female

DRUGS (6)
  1. EUTIROX [Concomitant]
     Active Substance: LEVOTHYROXINE SODIUM
  2. AMLODIPINE [Concomitant]
     Active Substance: AMLODIPINE BESYLATE
  3. DEPAKINE CRONO [Suspect]
     Active Substance: VALPROIC ACID
     Dosage: 40 DF TOTAL
     Dates: start: 20170505, end: 20170505
  4. ZARELIS [Concomitant]
     Active Substance: VENLAFAXINE HYDROCHLORIDE
  5. LEXOTAN [Concomitant]
     Active Substance: BROMAZEPAM
  6. QUETIAPINE. [Suspect]
     Active Substance: QUETIAPINE
     Dates: start: 20170505, end: 20170505

REACTIONS (3)
  - Loss of consciousness [Recovered/Resolved]
  - Toxicity to various agents [Unknown]
  - Drug use disorder [Unknown]

NARRATIVE: CASE EVENT DATE: 20170505
